FAERS Safety Report 11490030 (Version 1)
Quarter: 2015Q3

REPORT INFORMATION
  Report Type: Spontaneous
  Country: US (occurrence: US)
  Receive Date: 20150910
  Receipt Date: 20150910
  Transmission Date: 20151125
  Serious: No
  Sender: FDA-Public Use
  Company Number: US-TEVA-574552USA

PATIENT
  Age: 63 Year
  Sex: Female

DRUGS (1)
  1. CAPECITABINE. [Suspect]
     Active Substance: CAPECITABINE
     Indication: MALIGNANT URINARY TRACT NEOPLASM
     Dosage: 3 TABLETS TWICE A DAY FOR 2 WEEKS ON AND OFF 1 WEEK
     Route: 048

REACTIONS (6)
  - Drug dose omission [Unknown]
  - Nausea [Unknown]
  - Hypoaesthesia [Unknown]
  - Inappropriate schedule of drug administration [Unknown]
  - Diarrhoea [Unknown]
  - Yellow skin [Unknown]

NARRATIVE: CASE EVENT DATE: 20150601
